FAERS Safety Report 18392141 (Version 1)
Quarter: 2020Q4

REPORT INFORMATION
  Report Type: Spontaneous
  Country: US (occurrence: US)
  Receive Date: 20201016
  Receipt Date: 20201016
  Transmission Date: 20210114
  Serious: Yes (Other)
  Sender: FDA-Public Use
  Company Number: US-MYLANLABS-2020M1086910

PATIENT
  Age: 9 Decade
  Sex: Female

DRUGS (5)
  1. CYCLOPHOSPHAMIDE. [Concomitant]
     Active Substance: CYCLOPHOSPHAMIDE
     Indication: AMYLOIDOSIS
     Route: 065
     Dates: start: 201806, end: 201809
  2. BORTEZOMIB. [Concomitant]
     Active Substance: BORTEZOMIB
     Indication: AMYLOIDOSIS
     Route: 065
     Dates: start: 201806, end: 201809
  3. DEXAMETHASONE. [Suspect]
     Active Substance: DEXAMETHASONE
     Indication: AMYLOIDOSIS
     Dosage: INITIAL DOSE; ALONG WITH BORTEZOMIB AND CYCLOPHOSPHAMIDE
     Route: 065
     Dates: start: 201806, end: 201809
  4. LENALIDOMIDE [Suspect]
     Active Substance: LENALIDOMIDE
     Indication: AMYLOIDOSIS
     Dosage: 10 MILLIGRAM, QD
     Route: 065
     Dates: start: 201809
  5. DEXAMETHASONE. [Suspect]
     Active Substance: DEXAMETHASONE
     Dosage: 20 MILLIGRAM, QW, ALONG WITH LENALIDOMIDE
     Route: 065
     Dates: start: 201809

REACTIONS (3)
  - Fluid overload [Recovered/Resolved]
  - Generalised oedema [Recovered/Resolved]
  - Cardiac failure congestive [Recovered/Resolved]

NARRATIVE: CASE EVENT DATE: 2018
